FAERS Safety Report 4348957-1 (Version None)
Quarter: 2004Q2

REPORT INFORMATION
  Report Type: 
  Country: None (occurrence: None)
  Receive Date: 20040423
  Receipt Date: 20040413
  Transmission Date: 20050107
  Serious: Yes (Other)
  Sender: FDA-Public Use
  Company Number: US-JNJFOC-20040103393

PATIENT
  Age: 74 Year
  Sex: Male
  Weight: 79.3795 kg

DRUGS (12)
  1. REMICADE [Suspect]
     Indication: RHEUMATOID ARTHRITIS
     Dosage: 3 MG/KG, INTRAVENOUS
     Route: 042
     Dates: start: 20031002
  2. PREDNISONE [Concomitant]
  3. VASOTEC [Concomitant]
  4. INSULIN [Concomitant]
  5. NEXIUM [Concomitant]
  6. METHOTREXATE [Concomitant]
  7. FOLIC ACID [Concomitant]
  8. MVI (MUKLTIVITAMINS [Concomitant]
  9. PRAVACHOL [Concomitant]
  10. ACETYLSALICYLIC ACID SRT [Concomitant]
  11. ACETAMINOPHEN [Concomitant]
  12. ALLEGRA [Concomitant]

REACTIONS (12)
  - CHEST DISCOMFORT [None]
  - DYSPNOEA [None]
  - ERYTHEMA [None]
  - FEELING COLD [None]
  - HYPERHIDROSIS [None]
  - HYPOXIA [None]
  - PAIN [None]
  - PARAESTHESIA [None]
  - RESPIRATORY RATE INCREASED [None]
  - SWELLING FACE [None]
  - TACHYCARDIA [None]
  - WHEEZING [None]
